FAERS Safety Report 18000699 (Version 1)
Quarter: 2020Q3

REPORT INFORMATION
  Report Type: Spontaneous
  Country: NL (occurrence: NL)
  Receive Date: 20200709
  Receipt Date: 20200709
  Transmission Date: 20201103
  Serious: Yes (Other)
  Sender: FDA-Public Use
  Company Number: NL-TEVA-2020-NL-1798131

PATIENT
  Age: 12 Year
  Sex: Male
  Weight: 27.5 kg

DRUGS (6)
  1. METRONIDAZOL [Concomitant]
     Active Substance: METRONIDAZOLE
     Dosage: 3 DD 300 MGTHERAPY START DATE :ASKED BUT UNKNOWN :THERAPY END DATE :ASKED BUT UNKNOWN
  2. THIAMINE. [Concomitant]
     Active Substance: THIAMINE
     Dosage: 3 DD 25 MG:THERAPY START DATE :ASKED BUT UNKNOWN ,THERAPY END DATE :ASKED BUT UNKNOWN
  3. CEFTRIAXON 2000 MG [Concomitant]
     Dosage: 1 DD:THERAPY START DATE :ASKED BUT UNKNOWN :THERAPY END DATE :ASKED BUT UNKNOWN :UNIT DOSE:2000 MILL
  4. MORFINE (INJECTVL, IV 1 MG/ML) [Suspect]
     Active Substance: MORPHINE
     Indication: PROCEDURAL PAIN
     Dosage: AND BOLUS 1.5 MG AT 11.30:THERAPY START DATE :ASKED BUT UNKNOWN ,THERAPY END DATE :ASKED BUT UNKNOWN
     Route: 042
  5. OXYBUTYMINE (1MG/ML [Concomitant]
     Dosage: 3DD  4 MGTHERAPY START DATE :ASKED BUT UNKNOWN :THERAPY END DATE :ASKED BUT UNKNOWN
  6. MORFINE (INJECTVL, IV 1 MG/ML) [Suspect]
     Active Substance: MORPHINE
     Dosage: 0.6 MG PER UUR CONTINUE: 0 MILLIGRAM
     Route: 065
     Dates: start: 20200124, end: 20200124

REACTIONS (1)
  - Depressed level of consciousness [Recovered/Resolved]

NARRATIVE: CASE EVENT DATE: 20200124
